FAERS Safety Report 9725145 (Version 2)
Quarter: 2014Q1

REPORT INFORMATION
  Report Type: Not Available
  Country: US (occurrence: US)
  Receive Date: 20131203
  Receipt Date: 20140207
  Transmission Date: 20141002
  Serious: Yes (Other)
  Sender: FDA-Public Use
  Company Number: US-LUPIN PHARMACEUTICALS INC.-E2B_00001477

PATIENT
  Age: 75 Year
  Sex: Female
  Weight: 54.48 kg

DRUGS (9)
  1. LOVASTATIN TABLETS USP 40 MG [Suspect]
     Indication: HYPERLIPIDAEMIA
     Dates: start: 2008
  2. LOVASTATIN TABLETS USP 20 MG [Suspect]
     Indication: BLOOD CHOLESTEROL INCREASED
  3. LISINOPRIL [Concomitant]
     Indication: HYPERTENSION
  4. DILTIAZEM [Concomitant]
     Indication: HYPERTENSION
  5. GLYBURIDE [Concomitant]
     Indication: DIABETES MELLITUS
  6. METFORMIN [Concomitant]
     Indication: DIABETES MELLITUS
  7. HYDROXYZINE [Concomitant]
     Indication: HYPERSENSITIVITY
  8. SPIRIVA [Concomitant]
     Indication: PRODUCT USED FOR UNKNOWN INDICATION
     Route: 065
  9. PRO AIR [Concomitant]
     Indication: PRODUCT USED FOR UNKNOWN INDICATION
     Route: 065

REACTIONS (5)
  - Atypical pneumonia [Recovering/Resolving]
  - Hepatic mass [Not Recovered/Not Resolved]
  - Abdominal distension [Not Recovered/Not Resolved]
  - Abdominal pain upper [Unknown]
  - Myalgia [Not Recovered/Not Resolved]
